FAERS Safety Report 17017739 (Version 1)
Quarter: 2019Q4

REPORT INFORMATION
  Report Type: Spontaneous
  Country: GB (occurrence: GB)
  Receive Date: 20191111
  Receipt Date: 20191111
  Transmission Date: 20200122
  Serious: Yes (Hospitalization, Other)
  Sender: FDA-Public Use
  Company Number: GB-TAKEDA-2019TEU013303

PATIENT
  Age: 57 Year
  Sex: Female
  Weight: 54.88 kg

DRUGS (4)
  1. AMOXICILLIN. [Concomitant]
     Active Substance: AMOXICILLIN
     Dosage: UNK
  2. FOSTAIR [Concomitant]
     Active Substance: BECLOMETHASONE\FORMOTEROL
     Dosage: UNK
  3. CARBOCISTEINE [Concomitant]
     Active Substance: CARBOCYSTEINE
     Dosage: UNK
  4. ZOTON [Suspect]
     Active Substance: LANSOPRAZOLE
     Indication: DYSPEPSIA
     Dosage: 30 MILLIGRAM, QD
     Route: 048
     Dates: start: 20190918, end: 20190920

REACTIONS (4)
  - Aptyalism [Recovered/Resolved]
  - Swelling [Recovered/Resolved]
  - Pharyngeal swelling [Recovered/Resolved]
  - Salivary gland pain [Recovered/Resolved]

NARRATIVE: CASE EVENT DATE: 20190919
